FAERS Safety Report 14854125 (Version 7)
Quarter: 2018Q2

REPORT INFORMATION
  Report Type: Spontaneous
  Country: DE (occurrence: DE)
  Receive Date: 20180507
  Receipt Date: 20180620
  Transmission Date: 20180711
  Serious: Yes (Death, Hospitalization)
  Sender: FDA-Public Use
  Company Number: DE-ROCHE-2114617

PATIENT
  Age: 73 Year
  Sex: Female
  Weight: 69 kg

DRUGS (32)
  1. LASIX [Suspect]
     Active Substance: FUROSEMIDE
     Indication: HYPERTENSION
     Dosage: 120 MG, DOSE RANGED FROM 80 MG-120 MG DAILY?MOST RECENT DOSE:14/JUL/2001
     Route: 042
     Dates: start: 20010703
  2. SORTIS [Suspect]
     Active Substance: ATORVASTATIN
     Indication: HYPERLIPIDAEMIA
     Dosage: MOST RECENT DOSE: 03/JUL/2001
     Route: 048
     Dates: start: 20010616
  3. ROCEPHIN [Suspect]
     Active Substance: CEFTRIAXONE SODIUM
     Indication: PYREXIA
     Dosage: MOST RECENT DOSE: 03/JUL/2001
     Route: 042
     Dates: start: 20010629
  4. DIPOTASSIUM CLORAZEPATE [Suspect]
     Active Substance: CLORAZEPATE DIPOTASSIUM
     Indication: RESTLESSNESS
     Dosage: MOST RECENT DOSE:14/JUL/2001
     Route: 048
     Dates: start: 20010710
  5. CIPROFLOXACIN HYDROCHLORIDE. [Suspect]
     Active Substance: CIPROFLOXACIN HYDROCHLORIDE
     Indication: CHOLECYSTITIS
     Dosage: 500 MG, BID?MOST RECENT DOSE: 28/JUN/2001
     Route: 048
     Dates: start: 20010620
  6. PERENTEROL [Suspect]
     Active Substance: SACCHAROMYCES CEREVISIAE
     Indication: DIARRHOEA
     Dosage: 300 MG (100 MG TO 300MG)?MOST RECENT DOSE:14/JUL/2001
     Route: 048
     Dates: start: 20010711
  7. ISOSORBIDE MONONITRATE. [Suspect]
     Active Substance: ISOSORBIDE MONONITRATE
     Indication: CORONARY ARTERY DISEASE
     Dosage: MOST RECENT DOSE:14/JUL/2001
     Route: 048
     Dates: start: 20010703
  8. CIPROFLOXACIN HYDROCHLORIDE. [Suspect]
     Active Substance: CIPROFLOXACIN HYDROCHLORIDE
     Indication: CHOLECYSTITIS
     Dosage: 250 MG, BID
     Route: 048
     Dates: start: 20010710, end: 20010711
  9. PREDNISOLONE SODIUM SUCCINATE [Suspect]
     Active Substance: PREDNISOLONE SODIUM SUCCINATE
     Indication: DYSPNOEA
     Dosage: MOST RECENT DOSE:03/JUL/2001
     Route: 042
     Dates: start: 20010703
  10. EUNERPAN [Suspect]
     Active Substance: MELPERONE HYDROCHLORIDE
     Indication: RESTLESSNESS
     Dosage: 105 MG, (DOSE RANGED FROM 80-105 MG DAILY)?MOST RECENT DOSE:12/JUL/2001
     Route: 048
     Dates: start: 20010706
  11. NORVASC [Suspect]
     Active Substance: AMLODIPINE BESYLATE
     Indication: CORONARY ARTERY DISEASE
     Dosage: MOST RECENT DOSE: 14/JUL/2001
     Route: 048
     Dates: start: 20010703
  12. CARBIMAZOLE [Suspect]
     Active Substance: CARBIMAZOLE
     Indication: HYPERTHYROIDISM
     Dosage: 30 MG, (DOSE RANGED FROM 20-30 MG DAILY)?MOST RECENT DOSE:14/JUL/2001
     Route: 048
     Dates: start: 20010621
  13. DIAZEPAM. [Suspect]
     Active Substance: DIAZEPAM
     Indication: RESTLESSNESS
     Dosage: MOST RECENT DOSE:03/JUL/2001
     Route: 048
     Dates: start: 20010616
  14. ZAROXOLYN [Suspect]
     Active Substance: METOLAZONE
     Indication: HYPERTENSION
     Dosage: MOST RECENT DOSE:13/JUL/2001
     Route: 048
     Dates: start: 20010712
  15. AMPHOTERICIN B. [Suspect]
     Active Substance: AMPHOTERICIN B
     Indication: ANTIFUNGAL PROPHYLAXIS
     Dosage: MOST RECENT DOSE: 14/JUL/2001
     Route: 048
     Dates: start: 20010703
  16. IRENAT [Suspect]
     Active Substance: SODIUM PERCHLORATE
     Indication: HYPERTHYROIDISM
     Dosage: 688 MG, (TOTAL DAILY DOSE RANGED FROM 1376.8 MG TO 2065.2 MG)?MOST RECENT DOSE: 14/JUL/2001
     Route: 048
     Dates: start: 20010618
  17. PARACETAMOL [Suspect]
     Active Substance: ACETAMINOPHEN
     Indication: PAIN
     Dosage: MOST RECENT DOSE:11/JUL/2001
     Route: 048
     Dates: start: 20010711
  18. HALDOL [Concomitant]
     Active Substance: HALOPERIDOL
     Indication: RESTLESSNESS
     Dosage: UNK
     Route: 048
     Dates: start: 20010713, end: 20010714
  19. ASPIRIN. [Suspect]
     Active Substance: ASPIRIN
     Indication: CORONARY ARTERY DISEASE
     Dosage: MOST RECENT DOSE ON 14/JUL/2001
     Route: 048
     Dates: start: 20010616
  20. CONCOR [Suspect]
     Active Substance: BISOPROLOL FUMARATE
     Indication: CORONARY ARTERY DISEASE
     Route: 048
     Dates: start: 20010616, end: 20010714
  21. CAPTOPRIL. [Suspect]
     Active Substance: CAPTOPRIL
     Indication: CORONARY ARTERY DISEASE
     Dosage: MOST RECENT DOSE:14/JUL/2001
     Route: 048
     Dates: start: 20010616
  22. LANTUS [Suspect]
     Active Substance: INSULIN GLARGINE
     Indication: DIABETES MELLITUS
     Dosage: MOST RECENT DOSE:29/JUN/2001
     Route: 058
     Dates: start: 20010616
  23. METFORMIN HYDROCHLORIDE. [Suspect]
     Active Substance: METFORMIN HYDROCHLORIDE
     Indication: DIABETES MELLITUS
     Dosage: MOST RECENT DOSE:14/JUL/2001
     Route: 048
     Dates: start: 20010616
  24. METOCLOPRAMIDE HYDROCHLORIDE. [Suspect]
     Active Substance: METOCLOPRAMIDE HYDROCHLORIDE
     Indication: NAUSEA
     Dosage: MOST RECENT DOSE:12/JUL/2001
     Route: 048
     Dates: start: 20010704
  25. AMARYL [Suspect]
     Active Substance: GLIMEPIRIDE
     Indication: DIABETES MELLITUS
     Dosage: MOST RECENT DOSE: 03/JUL/2001
     Route: 048
     Dates: start: 20010616
  26. MOLSIDOMINE [Suspect]
     Active Substance: MOLSIDOMINE
     Indication: CORONARY ARTERY DISEASE
     Dosage: 8 MG, (DOSE REDUCED FROM 16 TO 8 MG DAILY)?MOST RECENT DOSE:14/JUL/2001
     Route: 048
     Dates: start: 20010703
  27. PANTOZOL [Suspect]
     Active Substance: PANTOPRAZOLE SODIUM
     Indication: PROPHYLAXIS
     Dosage: 40 MG, (DOSE DECREASED FROM 80 TO 40 MG DAILY)?MOST RECENT DOSE:14/JUL/2001
     Route: 048
     Dates: start: 20010616
  28. RAMIPRIL. [Suspect]
     Active Substance: RAMIPRIL
     Indication: CORONARY ARTERY DISEASE
     Dosage: MOST RECENT DOSE : 14/JUL/2001
     Route: 048
     Dates: start: 20010616
  29. PLAVIX [Suspect]
     Active Substance: CLOPIDOGREL BISULFATE
     Indication: CORONARY ARTERY DISEASE
     Dosage: MOST RECENT DOSE:14/JUL/2001
     Route: 048
     Dates: start: 20010704
  30. FRAGMIN [Suspect]
     Active Substance: DALTEPARIN SODIUM
     Indication: THROMBOSIS PROPHYLAXIS
     Dosage: MOST RECENT DOSE:14/JUL/2001
     Route: 058
     Dates: start: 20010703
  31. DIGOXIN. [Suspect]
     Active Substance: DIGOXIN
     Indication: CORONARY ARTERY DISEASE
     Dosage: MOST RECENT DOSE:14/JUL/2001
     Route: 048
     Dates: start: 20010703
  32. BROMAZEPAM [Concomitant]
     Active Substance: BROMAZEPAM
     Indication: RESTLESSNESS
     Dosage: 2 MG, UNK
     Route: 048
     Dates: start: 20010713, end: 20010714

REACTIONS (10)
  - Cholecystitis [Fatal]
  - Hyperthyroidism [Unknown]
  - Condition aggravated [Fatal]
  - Restlessness [Unknown]
  - Multiple organ dysfunction syndrome [Fatal]
  - Electrolyte imbalance [Fatal]
  - Nausea [Unknown]
  - Toxic epidermal necrolysis [Fatal]
  - Diarrhoea [Unknown]
  - Cholelithiasis [Fatal]

NARRATIVE: CASE EVENT DATE: 20010704
